FAERS Safety Report 6890856-5 (Version None)
Quarter: 2010Q3

REPORT INFORMATION
  Report Type: 
  Country: None (occurrence: None)
  Receive Date: 20100731
  Receipt Date: 20090401
  Transmission Date: 20110219
  Serious: No
  Sender: FDA-Public Use
  Company Number: US-PFIZER INC-2009191931

PATIENT

DRUGS (3)
  1. LIPITOR [Suspect]
     Dosage: 40 MG, 1X/DAY
     Dates: start: 20080601
  2. NIASPAN [Suspect]
     Dosage: 500 MG, 1X/DAY
     Dates: start: 20080601
  3. ZETIA [Suspect]
     Dosage: 10 MG, 1X/DAY
     Dates: start: 20080601

REACTIONS (2)
  - FATIGUE [None]
  - MUSCULAR WEAKNESS [None]
